FAERS Safety Report 15706965 (Version 1)
Quarter: 2018Q4

REPORT INFORMATION
  Report Type: Spontaneous
  Country: PK (occurrence: PK)
  Receive Date: 20181210
  Receipt Date: 20181210
  Transmission Date: 20190205
  Serious: Yes (Hospitalization)
  Sender: FDA-Public Use
  Company Number: PK-MYLANLABS-2018M1089473

PATIENT
  Age: 32 Year
  Sex: Female

DRUGS (2)
  1. TRIAMCINOLONE [Suspect]
     Active Substance: TRIAMCINOLONE
     Indication: STEROID THERAPY
     Route: 050
  2. PREDNISOLONE. [Suspect]
     Active Substance: PREDNISOLONE
     Indication: STEROID THERAPY
     Route: 048

REACTIONS (5)
  - Visual acuity reduced [Unknown]
  - Eye abscess [Recovered/Resolved]
  - Candida endophthalmitis [Recovered/Resolved with Sequelae]
  - Retinal detachment [Unknown]
  - Condition aggravated [Recovered/Resolved with Sequelae]
